FAERS Safety Report 5259350-1 (Version None)
Quarter: 2007Q1

REPORT INFORMATION
  Report Type: 
  Country: None (occurrence: None)
  Receive Date: 20070302
  Receipt Date: 20070219
  Transmission Date: 20070707
  Serious: Yes (Death, Life-Threatening)
  Sender: FDA-Public Use
  Company Number: GXKR2007FR01784

PATIENT
  Age: 71 Year
  Sex: Male

DRUGS (5)
  1. OXALIPLATIN (NGX)(OXALIPLATIN) UNKNOWN [Suspect]
     Indication: METASTASES TO LIVER
     Dosage: 14 CYCLES
     Dates: start: 19981201
  2. LEUCOVORIN CALCIUM (NGX) (CALCIUM FOLINATE) UNKNOWN [Suspect]
     Indication: METASTASIS
  3. FLUOROURACIL [Suspect]
     Indication: METASTASIS
     Dates: start: 19981201, end: 19991001
  4. RALTITREXED (RALTITREXED) UNK TO UNK [Concomitant]
  5. IRINOTECAN (IRINOTECAN) UNK TO UNK [Concomitant]

REACTIONS (7)
  - ENTEROCOCCAL SEPSIS [None]
  - HEPATIC FAILURE [None]
  - HYPOPROTHROMBINAEMIA [None]
  - METASTASES TO LIVER [None]
  - NEOPLASM PROGRESSION [None]
  - NO THERAPEUTIC RESPONSE [None]
  - VENOOCCLUSIVE LIVER DISEASE [None]
